FAERS Safety Report 4404238-9 (Version None)
Quarter: 2004Q3

REPORT INFORMATION
  Report Type: 
  Country: None (occurrence: None)
  Receive Date: 20040721
  Receipt Date: 20040721
  Transmission Date: 20050211
  Serious: Yes (Hospitalization)
  Sender: FDA-Public Use
  Company Number: None

PATIENT
  Age: 54 Year
  Sex: Male
  Weight: 67.7 kg

DRUGS (19)
  1. COUMADIN [Suspect]
     Indication: INTRACARDIAC THROMBUS
     Dosage: 5 MG PO
     Route: 048
     Dates: start: 20040127, end: 20040215
  2. COUMADIN [Suspect]
     Indication: THROMBOSIS PROPHYLAXIS
     Dosage: 5 MG PO
     Route: 048
     Dates: start: 20040127, end: 20040215
  3. LISINOPRIL [Concomitant]
  4. GABAPENTIN [Concomitant]
  5. DILTIAZEM (TIAZAC) [Concomitant]
  6. NEPRHO-VITE [Concomitant]
  7. SEVELAMER HCL [Concomitant]
  8. ATENOLOL [Concomitant]
  9. RABEPRAZOLE NA [Concomitant]
  10. CODEINE/ACETAMINOPHEN [Concomitant]
  11. TEMAZEPAM [Concomitant]
  12. DIPHENHYDRAMINE HCL [Concomitant]
  13. NITROGLYCERIN [Concomitant]
  14. HYDROPHILIC OINT [Concomitant]
  15. HYDROXYZINE HCL [Concomitant]
  16. CADEXOMER IODINE [Concomitant]
  17. CALCIUM CARBONATE [Concomitant]
  18. UREA [Concomitant]
  19. MUPIROCIN [Concomitant]

REACTIONS (3)
  - HAEMATOMA [None]
  - INTERNATIONAL NORMALISED RATIO INCREASED [None]
  - VENIPUNCTURE SITE HAEMORRHAGE [None]
